FAERS Safety Report 18499102 (Version 2)
Quarter: 2020Q4

REPORT INFORMATION
  Report Type: Other
  Country: US (occurrence: US)
  Receive Date: 20201113
  Receipt Date: 20201119
  Transmission Date: 20210114
  Serious: No
  Sender: FDA-Public Use
  Company Number: US-ROCHE-2708109

PATIENT
  Age: 39 Year
  Sex: Female

DRUGS (2)
  1. OCREVUS [Suspect]
     Active Substance: OCRELIZUMAB
     Indication: RELAPSING-REMITTING MULTIPLE SCLEROSIS
     Route: 065
  2. MAVENCLAD [Concomitant]
     Active Substance: CLADRIBINE
     Dates: start: 20200624

REACTIONS (5)
  - JC polyomavirus test positive [Unknown]
  - Fatigue [Unknown]
  - Drug ineffective [Unknown]
  - Band sensation [Unknown]
  - Muscle spasms [Unknown]

NARRATIVE: CASE EVENT DATE: 20191102
